FAERS Safety Report 10722554 (Version 2)
Quarter: 2015Q2

REPORT INFORMATION
  Report Type: Spontaneous
  Country: FR (occurrence: FR)
  Receive Date: 20150120
  Receipt Date: 20150504
  Transmission Date: 20150821
  Serious: Yes (Other)
  Sender: FDA-Public Use
  Company Number: FR-ROCHE-1522973

PATIENT
  Sex: Female

DRUGS (2)
  1. LUCENTIS [Suspect]
     Active Substance: RANIBIZUMAB
     Indication: PRODUCT USED FOR UNKNOWN INDICATION
     Route: 050
     Dates: start: 201405
  2. LUCENTIS [Suspect]
     Active Substance: RANIBIZUMAB
     Dosage: LAST INJECTION
     Route: 050
     Dates: start: 20140826

REACTIONS (4)
  - Asthenia [Recovered/Resolved with Sequelae]
  - Insomnia [Recovered/Resolved]
  - Arthralgia [Recovered/Resolved with Sequelae]
  - Pruritus [Recovered/Resolved]
